FAERS Safety Report 5328159-2 (Version None)
Quarter: 2007Q2

REPORT INFORMATION
  Report Type: 
  Country: None (occurrence: None)
  Receive Date: 20070514
  Receipt Date: 20070510
  Transmission Date: 20071010
  Serious: Yes (Hospitalization)
  Sender: FDA-Public Use
  Company Number: 2007SP008927

PATIENT
  Age: 55 Year
  Sex: Female

DRUGS (5)
  1. BETAMETHASONE [Suspect]
     Indication: SCIATICA
     Dosage: PO
     Route: 048
     Dates: start: 20061030, end: 20061105
  2. MYOLASTAN (TETRAZEPAM) [Suspect]
     Indication: SCIATICA
     Dosage: PO
     Route: 048
     Dates: start: 20061030, end: 20061105
  3. MIOREL (THIOCOLCHICOSIDE) [Suspect]
     Indication: SCIATICA
     Dosage: PO
     Route: 048
     Dates: start: 20061030, end: 20061105
  4. VOLTAREN [Concomitant]
  5. ZOMIG [Concomitant]

REACTIONS (3)
  - ABDOMINAL PAIN [None]
  - LYMPHANGIOMA [None]
  - PANCREATITIS ACUTE [None]
